FAERS Safety Report 22093642 (Version 1)
Quarter: 2023Q1

REPORT INFORMATION
  Report Type: Spontaneous
  Country: US (occurrence: None)
  Receive Date: 20230313
  Receipt Date: 20230313
  Transmission Date: 20230417
  Serious: Yes (Disabling)
  Sender: FDA-Public Use
  Company Number: None

PATIENT
  Age: 68 Year
  Sex: Female
  Weight: 79.2 kg

DRUGS (1)
  1. RYBELSUS [Suspect]
     Active Substance: SEMAGLUTIDE
     Indication: Diabetes mellitus inadequate control
     Dosage: FREQUENCY : DAILY;?
     Route: 048
     Dates: start: 20221116, end: 20230215

REACTIONS (2)
  - Blindness unilateral [None]
  - Retinal vein occlusion [None]

NARRATIVE: CASE EVENT DATE: 20230208
